FAERS Safety Report 9410266 (Version 2)
Quarter: 2013Q3

REPORT INFORMATION
  Report Type: Spontaneous
  Country: CA (occurrence: CA)
  Receive Date: 20130719
  Receipt Date: 20130816
  Transmission Date: 20140515
  Serious: Yes (Hospitalization, Other)
  Sender: FDA-Public Use
  Company Number: CA-PFIZER INC-2013173893

PATIENT
  Age: 59 Year
  Sex: Male

DRUGS (1)
  1. CHAMPIX [Suspect]
     Indication: NICOTINE DEPENDENCE
     Dosage: 1 MG, 2X/DAY
     Route: 048
     Dates: start: 2011

REACTIONS (3)
  - Bipolar disorder [Recovering/Resolving]
  - Nicotine dependence [Unknown]
  - Incorrect drug administration duration [Not Recovered/Not Resolved]
